FAERS Safety Report 12710189 (Version 2)
Quarter: 2016Q3

REPORT INFORMATION
  Report Type: Report from Study
  Country: JP (occurrence: JP)
  Receive Date: 20160902
  Receipt Date: 20160910
  Transmission Date: 20161109
  Serious: Yes (Hospitalization)
  Sender: FDA-Public Use
  Company Number: JP-AMGEN-JPNCT2016071217

PATIENT
  Age: 72 Year
  Sex: Male
  Weight: 50.3 kg

DRUGS (35)
  1. GLUCOSE [Concomitant]
     Active Substance: DEXTROSE
     Dosage: 250 ML, Q2WK
     Route: 041
     Dates: start: 20160328
  2. MINOMYCIN [Concomitant]
     Active Substance: MINOCYCLINE HYDROCHLORIDE
     Dosage: 100 MG, BID
     Route: 048
     Dates: start: 20160328, end: 20160821
  3. LOCOID [Concomitant]
     Active Substance: HYDROCORTISONE BUTYRATE
     Indication: DERMATITIS
     Dosage: UNK
     Route: 062
     Dates: start: 20160328, end: 20160821
  4. HEMOCURON [Concomitant]
     Active Substance: TRIBENOSIDE
     Indication: ANORECTAL DISORDER
     Dosage: 200 MG, TID
     Route: 048
     Dates: end: 20160821
  5. POSTERISAN FORTE                   /01567801/ [Concomitant]
     Indication: ANORECTAL DISORDER
     Dosage: UNK, QD
     Route: 065
     Dates: start: 20160523, end: 20160821
  6. OXALIPLATIN. [Concomitant]
     Active Substance: OXALIPLATIN
     Indication: COLON CANCER
     Dosage: 130 MG, Q2WEEKS
     Route: 041
     Dates: start: 20160328, end: 20160523
  7. 5-FU                               /00098801/ [Concomitant]
     Active Substance: FLUOROURACIL
     Dosage: 3100 MG/M2, Q2WK
     Route: 041
     Dates: start: 20160620
  8. GLUCOSE [Concomitant]
     Active Substance: DEXTROSE
     Dosage: 250 ML, Q2WK
     Route: 041
     Dates: start: 20160328
  9. PANITUMUMAB [Suspect]
     Active Substance: PANITUMUMAB
     Dosage: 300 MG, Q2WK
     Route: 041
     Dates: start: 20160620, end: 20160704
  10. OXALIPLATIN. [Concomitant]
     Active Substance: OXALIPLATIN
     Dosage: 100 MG/M2, Q2WK
     Route: 041
     Dates: start: 20160620
  11. 5-FU                               /00098801/ [Concomitant]
     Active Substance: FLUOROURACIL
     Indication: COLON CANCER
     Dosage: 600 MG/M2, Q2WK
     Route: 040
     Dates: start: 20160328, end: 20160523
  12. GLUCOSE [Concomitant]
     Active Substance: DEXTROSE
     Dosage: 50 ML, Q2WEEKS
     Route: 041
     Dates: start: 20160328
  13. GLUCOSE [Concomitant]
     Active Substance: DEXTROSE
     Dosage: 50 ML, Q2WEEKS
     Route: 041
     Dates: start: 20160328
  14. SHAKUYAKUKANZOTO [Concomitant]
     Active Substance: HERBALS
     Dosage: UNK, TID
     Route: 048
     Dates: end: 20160821
  15. MYOCOR [Concomitant]
     Active Substance: NITROGLYCERIN
     Indication: VASODILATATION
     Dosage: 1 DF, UNK
     Route: 060
     Dates: end: 20160821
  16. HEPARINOID [Concomitant]
     Active Substance: CHONDROITIN SULFATE (BOVINE)
     Indication: DERMATITIS
     Dosage: UNK
     Route: 062
     Dates: start: 20160328, end: 20160821
  17. AZUNOL                             /00620101/ [Concomitant]
     Indication: PROMOTION OF WOUND HEALING
     Dosage: UNK
     Route: 062
     Dates: start: 20160613, end: 20160821
  18. FRANDOL [Concomitant]
     Active Substance: ISOSORBIDE DINITRATE
     Indication: VASODILATATION
     Dosage: 40 MG, QD
     Route: 062
     Dates: end: 20160821
  19. PANITUMUMAB [Suspect]
     Active Substance: PANITUMUMAB
     Indication: COLON CANCER
     Dosage: 300 MG, Q2WK
     Route: 041
     Dates: start: 20160328, end: 20160523
  20. CALCIUM LEVOFOLINATE [Concomitant]
     Active Substance: LEVOLEUCOVORIN CALCIUM
     Indication: COLON CANCER
     Dosage: 300 MG, Q2WEEKS
     Route: 041
     Dates: start: 20160328
  21. JUVELA N [Concomitant]
     Active Substance: TOCOPHERYL NICOTINATE, D-.ALPHA.
     Dosage: 200 MG, TID
     Route: 048
     Dates: start: 20160824
  22. 5-FU                               /00098801/ [Concomitant]
     Active Substance: FLUOROURACIL
     Dosage: 3800 MG, Q2WEEKS
     Route: 041
     Dates: start: 20160328, end: 20160523
  23. DEXART [Concomitant]
     Active Substance: DEXAMETHASONE SODIUM PHOSPHATE
     Dosage: 6.6 MG, UNK
     Route: 041
     Dates: start: 20160328
  24. SODIUM CHLORIDE. [Concomitant]
     Active Substance: SODIUM CHLORIDE
     Dosage: 250 ML, Q2WK
     Route: 042
     Dates: start: 20160328
  25. SODIUM CHLORIDE. [Concomitant]
     Active Substance: SODIUM CHLORIDE
     Dosage: 100 ML, Q2WK
     Route: 042
     Dates: start: 20160328
  26. GRANISETRON                        /01178102/ [Concomitant]
     Active Substance: GRANISETRON
     Dosage: 1 MG/ML, UNK
     Route: 041
     Dates: start: 20160328
  27. URIEF [Concomitant]
     Active Substance: SILODOSIN
     Indication: DYSURIA
     Dosage: 4 MG, BID
     Route: 048
     Dates: end: 20160821
  28. JUVELA N [Concomitant]
     Active Substance: TOCOPHERYL NICOTINATE, D-.ALPHA.
     Indication: HYPERLIPIDAEMIA
     Dosage: 200 MG, TID
     Route: 048
     Dates: end: 20160821
  29. FRANDOL [Concomitant]
     Active Substance: ISOSORBIDE DINITRATE
     Dosage: 40 MG, QD
     Route: 062
     Dates: start: 20160824
  30. DRENISON                           /00182901/ [Concomitant]
     Indication: DERMATITIS
     Dosage: UNK, QD
     Route: 062
     Dates: start: 20160620, end: 20160821
  31. MYSER                              /01249201/ [Concomitant]
     Active Substance: DIFLUPREDNATE
     Indication: PROMOTION OF WOUND HEALING
     Dosage: UNK
     Route: 062
     Dates: start: 20160425, end: 20160821
  32. 5-FU                               /00098801/ [Concomitant]
     Active Substance: FLUOROURACIL
     Dosage: 300 MG/M2, Q2WK
     Route: 040
     Dates: start: 20160620
  33. SODIUM CHLORIDE. [Concomitant]
     Active Substance: SODIUM CHLORIDE
     Dosage: 100 ML, Q2WK
     Route: 042
     Dates: start: 20160328, end: 20160704
  34. URIEF [Concomitant]
     Active Substance: SILODOSIN
     Dosage: 4 MG, BID
     Route: 048
     Dates: start: 20160824
  35. SHAKUYAKUKANZOTO [Concomitant]
     Active Substance: HERBALS
     Dosage: UNK, TID
     Route: 048
     Dates: start: 20160824

REACTIONS (5)
  - Stomatitis [Recovered/Resolved]
  - Haemorrhoids [Not Recovered/Not Resolved]
  - Nausea [Recovered/Resolved]
  - Dysgeusia [Unknown]
  - Paronychia [Unknown]

NARRATIVE: CASE EVENT DATE: 20160815
